FAERS Safety Report 5480966-1 (Version None)
Quarter: 2007Q4

REPORT INFORMATION
  Report Type: 
  Country: None (occurrence: None)
  Receive Date: 20071009
  Receipt Date: 20070928
  Transmission Date: 20080405
  Serious: No
  Sender: FDA-Public Use
  Company Number: CZ-BAXTER-2007BH006836

PATIENT
  Age: 17 Year
  Sex: Female
  Weight: 32 kg

DRUGS (9)
  1. GAMMAGARD LIQUID [Suspect]
     Indication: PANCYTOPENIA
     Route: 042
     Dates: start: 20070802, end: 20070802
  2. GAMMAGARD LIQUID [Suspect]
     Route: 042
     Dates: start: 20070802, end: 20070802
  3. GAMMAGARD LIQUID [Suspect]
     Route: 042
     Dates: start: 20070802, end: 20070802
  4. TAZOCIN [Concomitant]
     Route: 042
  5. DIFLUCAN [Concomitant]
  6. HELICID [Concomitant]
  7. MOTILIUM [Concomitant]
  8. BACLOFEN [Concomitant]
  9. KABIVEN [Concomitant]
     Route: 042

REACTIONS (3)
  - CONVULSION [None]
  - POOR PERIPHERAL CIRCULATION [None]
  - PYREXIA [None]
